FAERS Safety Report 25457240 (Version 1)
Quarter: 2025Q2

REPORT INFORMATION
  Report Type: Report from Study
  Country: SE (occurrence: SE)
  Receive Date: 20250619
  Receipt Date: 20250619
  Transmission Date: 20250716
  Serious: Yes (Congenital Anomaly, Other)
  Sender: UCB
  Company Number: SE-UCBSA-2025036854

PATIENT

DRUGS (1)
  1. LEVETIRACETAM [Suspect]
     Active Substance: LEVETIRACETAM
     Indication: Product used for unknown indication
     Route: 064

REACTIONS (3)
  - Trisomy 18 [Unknown]
  - Fallot^s tetralogy [Unknown]
  - Maternal exposure during pregnancy [Unknown]
